FAERS Safety Report 4534912-5 (Version None)
Quarter: 2004Q4

REPORT INFORMATION
  Report Type: 
  Country: None (occurrence: None)
  Receive Date: 20041222
  Receipt Date: 20040727
  Transmission Date: 20050328
  Serious: No
  Sender: FDA-Public Use
  Company Number: US-BRISTOL-MYERS SQUIBB COMPANY-12653465

PATIENT
  Age: 81 Year
  Sex: Female
  Weight: 52 kg

DRUGS (12)
  1. PRAVACHOL [Suspect]
     Indication: BLOOD CHOLESTEROL INCREASED
     Route: 048
  2. TOPROL-XL [Concomitant]
  3. FUROSEMIDE [Concomitant]
  4. NORVASC [Concomitant]
  5. AVAPRO [Concomitant]
  6. DIGITEK [Concomitant]
  7. TRICOR [Concomitant]
  8. HUMULIN 70/30 [Concomitant]
  9. CALCIUM [Concomitant]
  10. MULTI-VITAMIN [Concomitant]
  11. ASPIRIN [Concomitant]
  12. MYSOLINE [Concomitant]

REACTIONS (1)
  - CREATININE RENAL CLEARANCE DECREASED [None]
